FAERS Safety Report 6724622-8 (Version None)
Quarter: 2010Q2

REPORT INFORMATION
  Report Type: 
  Country: None (occurrence: None)
  Receive Date: 20100513
  Receipt Date: 20100512
  Transmission Date: 20101027
  Serious: Yes (Death, Hospitalization)
  Sender: FDA-Public Use
  Company Number: DE-ABBOTT-10P-062-0643819-00

PATIENT
  Sex: Female

DRUGS (7)
  1. HUMIRA [Suspect]
     Indication: RHEUMATOID ARTHRITIS
     Dates: start: 20051101, end: 20080201
  2. METHOTREXATE [Suspect]
     Indication: RHEUMATOID ARTHRITIS
     Dates: start: 20030101, end: 20090901
  3. ETANERCEPT [Concomitant]
     Indication: RHEUMATOID ARTHRITIS
     Dates: start: 20041101, end: 20041201
  4. INFLIXIMAB [Concomitant]
     Indication: RHEUMATOID ARTHRITIS
     Dates: start: 20050101, end: 20050901
  5. LEFLUNOMIDE [Concomitant]
     Indication: RHEUMATOID ARTHRITIS
     Dates: start: 20030101, end: 20041101
  6. PREDNISOLON [Concomitant]
     Indication: RHEUMATOID ARTHRITIS
     Dates: start: 20060101
  7. DICLOFENAC [Concomitant]
     Indication: DRUG USE FOR UNKNOWN INDICATION
     Dates: start: 20080101

REACTIONS (4)
  - BRONCHIAL CARCINOMA [None]
  - HEPATIC FAILURE [None]
  - MULTI-ORGAN FAILURE [None]
  - SEPSIS [None]
